FAERS Safety Report 25526841 (Version 1)
Quarter: 2025Q3

REPORT INFORMATION
  Report Type: Spontaneous
  Country: US (occurrence: US)
  Receive Date: 20250707
  Receipt Date: 20250707
  Transmission Date: 20251021
  Serious: No
  Sender: ANI
  Company Number: US-ANIPHARMA-2025-US-026869

PATIENT
  Age: 71 Year
  Sex: Female
  Weight: 83.01 kg

DRUGS (5)
  1. PROPRANOLOL HYDROCHLORIDE [Suspect]
     Active Substance: PROPRANOLOL HYDROCHLORIDE
     Indication: Migraine
     Route: 048
     Dates: start: 2017
  2. HYDROCHLOROTHIAZIDE [Concomitant]
     Active Substance: HYDROCHLOROTHIAZIDE
  3. LOSARTAN [Concomitant]
     Active Substance: LOSARTAN
  4. PREVACID [Concomitant]
     Active Substance: LANSOPRAZOLE
  5. SYNTHROID [Concomitant]
     Active Substance: LEVOTHYROXINE SODIUM

REACTIONS (2)
  - Migraine [Unknown]
  - Drug ineffective [Unknown]
